FAERS Safety Report 19672961 (Version 6)
Quarter: 2022Q3

REPORT INFORMATION
  Report Type: Report from Study
  Country: US (occurrence: US)
  Receive Date: 20210809
  Receipt Date: 20220712
  Transmission Date: 20221026
  Serious: No
  Sender: FDA-Public Use
  Company Number: NVSC2021US156426

PATIENT
  Age: 69 Year
  Sex: Female

DRUGS (1)
  1. COSENTYX [Suspect]
     Active Substance: SECUKINUMAB
     Indication: Psoriatic arthropathy
     Dosage: 150 MG, QMO (ONCE EVERY 4 WEEKS)
     Route: 058

REACTIONS (10)
  - Sluggishness [Unknown]
  - Arthralgia [Unknown]
  - Back pain [Unknown]
  - Migraine [Unknown]
  - Fatigue [Unknown]
  - Myalgia [Unknown]
  - Endocrine disorder [Unknown]
  - Malaise [Unknown]
  - Drug ineffective [Unknown]
  - COVID-19 [Recovered/Resolved]

NARRATIVE: CASE EVENT DATE: 20211201
